FAERS Safety Report 23898379 (Version 1)
Quarter: 2024Q2

REPORT INFORMATION
  Report Type: Spontaneous
  Country: FR (occurrence: FR)
  Receive Date: 20240524
  Receipt Date: 20240524
  Transmission Date: 20240716
  Serious: Yes (Hospitalization)
  Sender: FDA-Public Use
  Company Number: FR-PRINSTON PHARMACEUTICAL INC.-2024PRN00223

PATIENT
  Age: 61 Year
  Sex: Female

DRUGS (2)
  1. RISPERIDONE [Suspect]
     Active Substance: RISPERIDONE
     Dosage: 4 MG, 1X/DAY
     Dates: start: 201507
  2. DULOXETINE [Concomitant]
     Active Substance: DULOXETINE

REACTIONS (1)
  - Acute respiratory distress syndrome [Recovered/Resolved]
